FAERS Safety Report 4328412-5 (Version None)
Quarter: 2004Q1

REPORT INFORMATION
  Report Type: 
  Country: None (occurrence: None)
  Receive Date: 20040331
  Receipt Date: 20040324
  Transmission Date: 20041129
  Serious: Yes (Other)
  Sender: FDA-Public Use
  Company Number: US-BRISTOL-MYERS SQUIBB COMPANY-12545505

PATIENT
  Age: 64 Year
  Sex: Female

DRUGS (3)
  1. CISPLATIN [Suspect]
     Indication: OROPHARYNGEAL CANCER STAGE UNSPECIFIED
  2. ETOPOSIDE [Suspect]
     Indication: OROPHARYNGEAL CANCER STAGE UNSPECIFIED
  3. FLUOROURACIL [Suspect]
     Indication: OROPHARYNGEAL CANCER STAGE UNSPECIFIED

REACTIONS (1)
  - ISCHAEMIC STROKE [None]
